FAERS Safety Report 4408296-7 (Version None)
Quarter: 2004Q3

REPORT INFORMATION
  Report Type: 
  Country: None (occurrence: None)
  Receive Date: 20040722
  Receipt Date: 20040709
  Transmission Date: 20050211
  Serious: Yes (Other)
  Sender: FDA-Public Use
  Company Number: US-JNJFOC-20040703173

PATIENT
  Age: 68 Year
  Sex: Female

DRUGS (3)
  1. INFLIXIMAB (INFLIXIMAB, RECOMBINANT) LYOPHILIZED POWDER [Suspect]
     Indication: RHEUMATOID ARTHRITIS
     Dosage: SEE IMAGE
     Route: 042
     Dates: start: 20020901
  2. METHOTREXATE [Concomitant]
  3. AZATHIOPRINE [Concomitant]

REACTIONS (5)
  - ARTHRALGIA [None]
  - COCCIDIOIDOMYCOSIS [None]
  - CONDITION AGGRAVATED [None]
  - PNEUMONIA [None]
  - SWELLING [None]
